APPROVED DRUG PRODUCT: SYLEVIA
Active Ingredient: ETHINYL ESTRADIOL; LEVONORGESTREL
Strength: 0.03MG;0.15MG
Dosage Form/Route: TABLET;ORAL
Application: A202988 | Product #001
Applicant: SUN PHARMACEUTICAL INDUSTRIES LTD
Approved: Feb 6, 2019 | RLD: No | RS: No | Type: DISCN